FAERS Safety Report 15710292 (Version 2)
Quarter: 2019Q2

REPORT INFORMATION
  Report Type: Spontaneous
  Country: US (occurrence: US)
  Receive Date: 20181211
  Receipt Date: 20190515
  Transmission Date: 20190711
  Serious: No
  Sender: FDA-Public Use
  Company Number: US-PFIZER INC-2018506652

PATIENT
  Age: 63 Year
  Sex: Female

DRUGS (1)
  1. GABAPENTIN. [Suspect]
     Active Substance: GABAPENTIN
     Indication: BACK PAIN
     Dosage: 1-3 CAPS
     Route: 048
     Dates: start: 20150106, end: 20150206

REACTIONS (7)
  - Off label use [Unknown]
  - Product use in unapproved indication [Unknown]
  - Mood altered [Unknown]
  - Disturbance in attention [Unknown]
  - Drug hypersensitivity [Unknown]
  - Tearfulness [Recovered/Resolved]
  - Abulia [Recovered/Resolved]

NARRATIVE: CASE EVENT DATE: 20150106
